FAERS Safety Report 9095815 (Version 2)
Quarter: 2013Q1

REPORT INFORMATION
  Report Type: Spontaneous
  Country: FR (occurrence: FR)
  Receive Date: 20130219
  Receipt Date: 20130301
  Transmission Date: 20140127
  Serious: Yes (Hospitalization)
  Sender: FDA-Public Use
  Company Number: FR-PFIZER INC-2013061417

PATIENT
  Age: 75 Year
  Sex: Male

DRUGS (7)
  1. CORDARONE [Suspect]
     Indication: CARDIOVERSION
     Dosage: 1000 MG (5 DOSAGE FORM), DAILY
     Route: 048
     Dates: start: 20121105, end: 20121108
  2. XARELTO [Suspect]
     Indication: ATRIAL FIBRILLATION
     Dosage: 15 MG (1 DOSAGE FORM), DAILY
     Route: 048
     Dates: start: 20120930, end: 20121108
  3. INEGY [Concomitant]
     Indication: HYPERCHOLESTEROLAEMIA
     Dosage: UNK
     Dates: end: 20121108
  4. METFORMIN [Concomitant]
     Indication: TYPE 2 DIABETES MELLITUS
     Dosage: UNK
     Dates: end: 20121108
  5. CARDENSIEL [Concomitant]
     Dosage: UNK
  6. TRIATEC [Concomitant]
     Indication: HYPERTENSION
     Dosage: UNK
     Dates: end: 20121108
  7. COUMADINE [Concomitant]
     Dosage: UNK
     Dates: start: 20121113

REACTIONS (15)
  - Hepatitis [Recovered/Resolved]
  - Renal failure [Unknown]
  - Lactic acidosis [Unknown]
  - Cardiogenic shock [Recovering/Resolving]
  - Atrial fibrillation [Unknown]
  - Overdose [Unknown]
  - International normalised ratio increased [Unknown]
  - Hepatic failure [Recovered/Resolved]
  - Ischaemic hepatitis [Recovered/Resolved]
  - Thrombocytopenia [Unknown]
  - Vascular purpura [Unknown]
  - Amyloidosis [Unknown]
  - Vasculitis [Unknown]
  - Rheumatoid factor positive [Unknown]
  - Antinuclear antibody positive [Unknown]
